FAERS Safety Report 6867325-1 (Version None)
Quarter: 2010Q3

REPORT INFORMATION
  Report Type: 
  Country: None (occurrence: None)
  Receive Date: 20100722
  Receipt Date: 20100720
  Transmission Date: 20110219
  Serious: Yes (Hospitalization)
  Sender: FDA-Public Use
  Company Number: US-MERCK-1006USA03938

PATIENT
  Age: 51 Year
  Sex: Male

DRUGS (1)
  1. HYZAAR [Suspect]
     Route: 048
     Dates: start: 20081113, end: 20090115

REACTIONS (2)
  - BLOOD PRESSURE INCREASED [None]
  - HOSPITALISATION [None]
